FAERS Safety Report 19887227 (Version 3)
Quarter: 2021Q4

REPORT INFORMATION
  Report Type: Spontaneous
  Country: CH (occurrence: CH)
  Receive Date: 20210927
  Receipt Date: 20211012
  Transmission Date: 20220304
  Serious: Yes (Other)
  Sender: FDA-Public Use
  Company Number: CH-MLMSERVICE-20210914-3097790-2

PATIENT
  Age: 64 Year
  Sex: Male
  Weight: 106 kg

DRUGS (10)
  1. METHYLPREDNISOLONE [Suspect]
     Active Substance: METHYLPREDNISOLONE
     Indication: Transplant rejection
     Dosage: 500 MG, 4X/DAY, FOR 3 DAYS
     Dates: start: 2019, end: 2019
  2. PREDNISONE [Suspect]
     Active Substance: PREDNISONE
     Indication: Transplant rejection
     Dosage: UNK UNK, TAPERED
     Route: 048
  3. PREDNISONE [Suspect]
     Active Substance: PREDNISONE
     Dosage: 1-0-0 (5 MG, 1X/DAY)
     Route: 048
     Dates: start: 20180319
  4. MYCOPHENOLATE MOFETIL [Concomitant]
     Active Substance: MYCOPHENOLATE MOFETIL
     Indication: Immunosuppression
     Dosage: UNK
  5. MYCOPHENOLATE MOFETIL [Concomitant]
     Active Substance: MYCOPHENOLATE MOFETIL
     Dosage: 2-0-2 (2 DF, EVERY 12 HOURS)
     Route: 048
     Dates: start: 20180319, end: 20180924
  6. CYCLOSPORINE [Concomitant]
     Active Substance: CYCLOSPORINE
     Indication: Immunosuppression
     Dosage: UNK
     Dates: start: 201901, end: 2019
  7. CYCLOSPORINE [Concomitant]
     Active Substance: CYCLOSPORINE
     Dosage: UNK
     Dates: start: 2019, end: 2019
  8. LETERMOVIR [Concomitant]
     Active Substance: LETERMOVIR
     Indication: Prophylaxis
     Dosage: 240 MG, 4X/DAY
     Dates: start: 2019, end: 2019
  9. FOSCARNET [Concomitant]
     Active Substance: FOSCARNET
     Indication: Cytomegalovirus viraemia
     Dosage: 40 MG/KG, 2X/DAY
  10. EVEROLIMUS [Concomitant]
     Active Substance: EVEROLIMUS
     Indication: Immunosuppression
     Dosage: UNK

REACTIONS (2)
  - Cytomegalovirus viraemia [Recovered/Resolved]
  - Fatigue [Unknown]

NARRATIVE: CASE EVENT DATE: 20190101
